FAERS Safety Report 4828644-3 (Version None)
Quarter: 2005Q4

REPORT INFORMATION
  Report Type: 
  Country: None (occurrence: None)
  Receive Date: 20051014
  Receipt Date: 20050701
  Transmission Date: 20060501
  Serious: No
  Sender: FDA-Public Use
  Company Number: 2005SP000893

PATIENT
  Age: 80 Year
  Sex: Male
  Weight: 65.7716 kg

DRUGS (4)
  1. LUNESTA [Suspect]
     Indication: INSOMNIA
     Dosage: 1 MG; HS; ORAL; 2 MG; X1; ORAL; 3 MG; HS; ORAL
     Route: 048
     Dates: start: 20050501
  2. LUNESTA [Suspect]
     Indication: INSOMNIA
     Dosage: 1 MG; HS; ORAL; 2 MG; X1; ORAL; 3 MG; HS; ORAL
     Route: 048
     Dates: start: 20050501
  3. LUNESTA [Suspect]
     Indication: INSOMNIA
     Dosage: 1 MG; HS; ORAL; 2 MG; X1; ORAL; 3 MG; HS; ORAL
     Route: 048
     Dates: start: 20050501
  4. LISINOPRIL [Concomitant]

REACTIONS (3)
  - DRUG INEFFECTIVE [None]
  - INSOMNIA [None]
  - NIGHTMARE [None]
